FAERS Safety Report 5356968-2 (Version None)
Quarter: 2007Q2

REPORT INFORMATION
  Report Type: 
  Country: None (occurrence: None)
  Receive Date: 20070614
  Receipt Date: 20070613
  Transmission Date: 20071010
  Serious: Yes (Other)
  Sender: FDA-Public Use
  Company Number: MX-BRISTOL-MYERS SQUIBB COMPANY-13790688

PATIENT
  Age: 73 Year
  Sex: Female

DRUGS (5)
  1. BLINDED: APIXABAN [Suspect]
     Indication: THROMBOSIS PROPHYLAXIS
     Dosage: RESTARTED 3-APR-2007
     Route: 048
     Dates: start: 20070402, end: 20070402
  2. BLINDED: PLACEBO [Suspect]
     Indication: THROMBOSIS PROPHYLAXIS
     Dosage: RESTARTED 3-APR-2007
     Dates: start: 20070402, end: 20070402
  3. BLINDED: ENOXAPARIN SODIUM [Suspect]
     Indication: THROMBOSIS PROPHYLAXIS
     Dosage: RESTARTED 3-APR-2007
     Route: 058
     Dates: start: 20070402, end: 20070402
  4. ENALAPRIL MALEATE [Concomitant]
     Dates: start: 20070303
  5. GLIBENCLAMIDE [Concomitant]
     Dates: start: 20061101

REACTIONS (1)
  - OVERDOSE [None]
